FAERS Safety Report 4598079-X (Version None)
Quarter: 2005Q1

REPORT INFORMATION
  Report Type: 
  Country: None (occurrence: None)
  Receive Date: 20050304
  Receipt Date: 20050221
  Transmission Date: 20050727
  Serious: Yes (Hospitalization)
  Sender: FDA-Public Use
  Company Number: FR-ABBOTT-05P-056-0291615-00

PATIENT
  Age: 36 Year
  Sex: Female

DRUGS (14)
  1. DEPAKOTE [Suspect]
     Indication: MANIA
     Route: 048
     Dates: start: 20041211, end: 20041216
  2. DEPAKOTE [Suspect]
     Route: 048
     Dates: start: 20041208, end: 20041210
  3. DIAZEPAM [Suspect]
     Indication: DELIRIUM
     Dosage: 1 PERCENT SOLUTION, 90 GTTS
     Route: 048
     Dates: start: 20041208, end: 20041215
  4. DIAZEPAM [Suspect]
     Dosage: 90 GTTS
     Route: 048
     Dates: start: 20041201, end: 20041202
  5. DIAZEPAM [Suspect]
     Dosage: 70 GTT
     Route: 048
     Dates: start: 20041203, end: 20041204
  6. DIAZEPAM [Suspect]
     Dosage: 60 GTTS
     Route: 048
     Dates: start: 20041205, end: 20041207
  7. ZOPICLONE [Suspect]
     Indication: DELIRIUM
     Route: 048
     Dates: start: 20041128, end: 20041216
  8. OLANZAPINE [Suspect]
     Indication: DELIRIUM
     Route: 048
     Dates: start: 20041212, end: 20041216
  9. OLANZAPINE [Suspect]
     Route: 048
     Dates: start: 20041128, end: 20041130
  10. OLANZAPINE [Suspect]
     Route: 048
     Dates: start: 20041210, end: 20041211
  11. OLANZAPINE [Suspect]
     Route: 048
     Dates: start: 20041212, end: 20041216
  12. OLANZAPINE [Suspect]
     Route: 048
     Dates: start: 20041220
  13. CYAMEMAZINE [Concomitant]
     Indication: DELIRIUM
     Route: 048
     Dates: start: 20041128, end: 20041130
  14. PAROXETINE HYDROCHLORIDE [Concomitant]
     Indication: DRUG USE FOR UNKNOWN INDICATION
     Route: 048
     Dates: start: 20041205, end: 20041207

REACTIONS (6)
  - COMA [None]
  - DRUG LEVEL ABOVE THERAPEUTIC [None]
  - ENCEPHALOPATHY [None]
  - FALL [None]
  - HYPOTONIA [None]
  - SEDATION [None]
